FAERS Safety Report 7467038-1 (Version None)
Quarter: 2011Q2

REPORT INFORMATION
  Report Type: 
  Country: None (occurrence: None)
  Receive Date: 20110509
  Receipt Date: 20110428
  Transmission Date: 20111010
  Serious: Yes (Hospitalization)
  Sender: FDA-Public Use
  Company Number: US-ASTRAZENECA-2011SE24661

PATIENT
  Age: 18205 Day
  Sex: Female
  Weight: 59 kg

DRUGS (5)
  1. LAMICTAL [Concomitant]
     Indication: DEPRESSION
  2. TRAZODONE HCL [Concomitant]
     Indication: DEPRESSION
  3. VISTARIL [Concomitant]
     Indication: DEPRESSION
  4. SEROQUEL [Suspect]
     Indication: BIPOLAR DISORDER
     Route: 048
     Dates: start: 20070101
  5. LUPRON [Concomitant]

REACTIONS (3)
  - MENTAL DISORDER [None]
  - INCORRECT DOSE ADMINISTERED [None]
  - ROAD TRAFFIC ACCIDENT [None]
